FAERS Safety Report 23013756 (Version 1)
Quarter: 2023Q4

REPORT INFORMATION
  Report Type: Spontaneous
  Country: GB (occurrence: GB)
  Receive Date: 20231001
  Receipt Date: 20231001
  Transmission Date: 20240110
  Serious: Yes (Other)
  Sender: FDA-Public Use
  Company Number: None

PATIENT
  Age: 34 Year
  Sex: Female

DRUGS (1)
  1. OCTREOTIDE [Suspect]
     Active Substance: OCTREOTIDE
     Indication: Neuroendocrine tumour
     Dates: start: 20220124

REACTIONS (3)
  - Injection site swelling [Recovering/Resolving]
  - Injection site mass [Recovered/Resolved with Sequelae]
  - Injection site pain [Recovering/Resolving]

NARRATIVE: CASE EVENT DATE: 20220214
